FAERS Safety Report 7431061-3 (Version None)
Quarter: 2011Q2

REPORT INFORMATION
  Report Type: 
  Country: None (occurrence: None)
  Receive Date: 20110421
  Receipt Date: 20110411
  Transmission Date: 20111010
  Serious: Yes (Hospitalization, Other)
  Sender: FDA-Public Use
  Company Number: ES-ELI_LILLY_AND_COMPANY-ES201104003061

PATIENT
  Sex: Female
  Weight: 52 kg

DRUGS (10)
  1. PREDNISONE [Concomitant]
     Dosage: 10 MG, QD
     Route: 048
  2. DORMICUM [Concomitant]
     Indication: SLEEP DISORDER
     Dosage: 2 DF, QD
     Route: 048
  3. PARACETAMOL [Concomitant]
     Dosage: UNK, PRN
     Route: 048
  4. GLUCOSAMINA [Concomitant]
     Dosage: 1 DF, EVERY 8 HRS
     Route: 048
  5. ATORVASTATINA [Concomitant]
     Dosage: UNK, QD
     Route: 048
  6. FUROSEMIDA                         /00032601/ [Concomitant]
     Dosage: 1 DF, QD
     Route: 048
  7. REPAGLINIDE [Concomitant]
     Dosage: UNK, QD
     Route: 048
  8. ALPRAZOLAM [Concomitant]
     Dosage: UNK, QD
     Route: 048
  9. ALLOPURINOL [Concomitant]
     Dosage: UNK, QD
     Route: 048
  10. FORTEO [Suspect]
     Indication: OSTEOPOROSIS
     Dosage: 20 UG, QD
     Route: 058
     Dates: start: 20101028

REACTIONS (3)
  - OEDEMA PERIPHERAL [None]
  - HYPERGLYCAEMIA [None]
  - RENAL FAILURE [None]
